FAERS Safety Report 9945215 (Version 1)
Quarter: 2014Q1

REPORT INFORMATION
  Report Type: Report from Study
  Country: US (occurrence: US)
  Receive Date: 20140303
  Receipt Date: 20140303
  Transmission Date: 20141002
  Serious: No
  Sender: FDA-Public Use
  Company Number: US-ABBVIE-13P-163-1050829-00

PATIENT
  Sex: Female

DRUGS (16)
  1. HUMIRA [Suspect]
     Indication: CROHN^S DISEASE
     Dates: start: 20121214, end: 20121214
  2. HUMIRA [Suspect]
     Dates: start: 20121228, end: 20121228
  3. HUMIRA [Suspect]
     Dates: start: 20121130, end: 201212
  4. LISINOPRIL [Concomitant]
     Indication: PRODUCT USED FOR UNKNOWN INDICATION
  5. LEXAPRO [Concomitant]
     Indication: ANXIETY
  6. PENTASA [Concomitant]
     Indication: CROHN^S DISEASE
  7. REFRESH CELLUVISC [Concomitant]
     Indication: PRODUCT USED FOR UNKNOWN INDICATION
  8. PREVALITE [Concomitant]
     Indication: CROHN^S DISEASE
     Dosage: QHS
  9. VITAMINS [Concomitant]
     Indication: PRODUCT USED FOR UNKNOWN INDICATION
  10. CINBUGAN [Concomitant]
     Indication: GLAUCOMA
  11. LUMIGAN [Concomitant]
     Indication: GLAUCOMA
  12. CHLOR KON [Concomitant]
     Indication: PRODUCT USED FOR UNKNOWN INDICATION
  13. LASIX [Concomitant]
     Indication: PRODUCT USED FOR UNKNOWN INDICATION
  14. DILTIAZEM [Concomitant]
     Indication: PRODUCT USED FOR UNKNOWN INDICATION
  15. CALTRATE [Concomitant]
     Indication: PRODUCT USED FOR UNKNOWN INDICATION
  16. VITAMIN B12 [Concomitant]
     Indication: PRODUCT USED FOR UNKNOWN INDICATION

REACTIONS (8)
  - Herpes zoster [Unknown]
  - Joint swelling [Not Recovered/Not Resolved]
  - Erythema [Not Recovered/Not Resolved]
  - Bone pain [Not Recovered/Not Resolved]
  - Blood test abnormal [Unknown]
  - Lupus-like syndrome [Not Recovered/Not Resolved]
  - Sjogren^s syndrome [Not Recovered/Not Resolved]
  - Cystitis [Unknown]
